FAERS Safety Report 10613826 (Version 1)
Quarter: 2014Q4

REPORT INFORMATION
  Report Type: Spontaneous
  Country: JP (occurrence: JP)
  Receive Date: 20141128
  Receipt Date: 20141128
  Transmission Date: 20150529
  Serious: Yes (Other)
  Sender: FDA-Public Use
  Company Number: JP-PFIZER INC-2014325350

PATIENT
  Sex: Male

DRUGS (5)
  1. ZOVIRAX [Concomitant]
     Active Substance: ACYCLOVIR
     Indication: HERPES ZOSTER
     Route: 047
  2. LYRICA [Suspect]
     Active Substance: PREGABALIN
     Indication: HERPES ZOSTER
     Route: 048
  3. DOGMATYL [Concomitant]
     Active Substance: SULPIRIDE
  4. MEILAX [Concomitant]
     Active Substance: ETHYL LOFLAZEPATE
  5. GATIFLO [Concomitant]
     Active Substance: GATIFLOXACIN
     Indication: HERPES ZOSTER
     Route: 047

REACTIONS (1)
  - Hepatitis [Unknown]
